FAERS Safety Report 21089844 (Version 1)
Quarter: 2022Q3

REPORT INFORMATION
  Report Type: Spontaneous
  Country: FR (occurrence: FR)
  Receive Date: 20220715
  Receipt Date: 20220715
  Transmission Date: 20221026
  Serious: Yes (Hospitalization)
  Sender: FDA-Public Use
  Company Number: FR-ALLERGAN-2222858US

PATIENT

DRUGS (2)
  1. TIMOLOL [Interacting]
     Active Substance: TIMOLOL
     Indication: Product used for unknown indication
  2. DILTIAZEM [Interacting]
     Active Substance: DILTIAZEM
     Indication: Product used for unknown indication

REACTIONS (2)
  - Drug interaction [Unknown]
  - Bradycardia [Unknown]
